FAERS Safety Report 18676196 (Version 1)
Quarter: 2020Q4

REPORT INFORMATION
  Report Type: Report from Study
  Country: US (occurrence: US)
  Receive Date: 20201229
  Receipt Date: 20201229
  Transmission Date: 20210114
  Serious: Yes (Hospitalization)
  Sender: FDA-Public Use
  Company Number: US-ADAMAS PHARMA, LLC-2020ADA02864

PATIENT
  Sex: Male

DRUGS (18)
  1. MIRAPEX [Concomitant]
     Active Substance: PRAMIPEXOLE DIHYDROCHLORIDE
     Dosage: 0.5 MG, 3X/DAY
  2. FAMOTIDINE. [Concomitant]
     Active Substance: FAMOTIDINE
  3. RYTARY [Concomitant]
     Active Substance: CARBIDOPA\LEVODOPA
  4. SINEMET [Concomitant]
     Active Substance: CARBIDOPA\LEVODOPA
     Dosage: 0.5 TABLETS, 3X/DAY
  5. ATORVASTATIN [Concomitant]
     Active Substance: ATORVASTATIN
     Dosage: 10 MG, 1X/DAY
  6. METOPROLOL. [Concomitant]
     Active Substance: METOPROLOL
  7. RAMIPRIL. [Concomitant]
     Active Substance: RAMIPRIL
  8. RYTARY [Concomitant]
     Active Substance: CARBIDOPA\LEVODOPA
  9. TAMSULOSIN [Concomitant]
     Active Substance: TAMSULOSIN
     Dosage: 0.4 MG, 1X/DAY
  10. SELEGILINE [Concomitant]
     Active Substance: SELEGILINE
     Dosage: 5 MG, 2X/DAY
  11. COMTAN [Concomitant]
     Active Substance: ENTACAPONE
     Dosage: 200 MG, 6X/DAY
  12. LISINOPRIL. [Concomitant]
     Active Substance: LISINOPRIL
  13. GOCOVRI [Suspect]
     Active Substance: AMANTADINE
     Indication: DYSKINESIA
     Dosage: 137 MG, 1X/DAY, AT BEDTIME
     Route: 048
     Dates: start: 20180119, end: 2020
  14. GOCOVRI [Suspect]
     Active Substance: AMANTADINE
     Dosage: UNK, ^TEMPORARILY CHANGED^
     Route: 048
     Dates: start: 2020
  15. FINASTERIDE. [Concomitant]
     Active Substance: FINASTERIDE
     Dosage: 5 MG, 1X/DAY
  16. BUSPIRONE [Concomitant]
     Active Substance: BUSPIRONE HYDROCHLORIDE
     Dosage: 20 MG, 3X/DAY
  17. METHOCARBAMOL. [Concomitant]
     Active Substance: METHOCARBAMOL
  18. POTASSIUM CITRATE. [Concomitant]
     Active Substance: POTASSIUM CITRATE
     Dosage: 1080 MG, 4X/DAY

REACTIONS (3)
  - Dysphagia [Unknown]
  - Pneumonia aspiration [Unknown]
  - Gastrostomy [Unknown]

NARRATIVE: CASE EVENT DATE: 2020
